FAERS Safety Report 11860043 (Version 3)
Quarter: 2016Q1

REPORT INFORMATION
  Report Type: Report from Study
  Country: IT (occurrence: IT)
  Receive Date: 20151222
  Receipt Date: 20160317
  Transmission Date: 20160526
  Serious: Yes (Hospitalization)
  Sender: FDA-Public Use
  Company Number: IT-BIOGEN-2015BI140929

PATIENT
  Age: 44 Year
  Sex: Male
  Weight: 85 kg

DRUGS (6)
  1. SERUPIN [Concomitant]
     Indication: DEPRESSION
     Route: 048
     Dates: start: 201110
  2. BIIB033 [Suspect]
     Active Substance: OPICINUMAB
     Indication: MULTIPLE SCLEROSIS
     Route: 042
     Dates: start: 20140429, end: 20150909
  3. AVONEX [Concomitant]
     Active Substance: INTERFERON BETA-1A
     Indication: MULTIPLE SCLEROSIS
     Route: 030
     Dates: start: 20140429, end: 20150903
  4. LIORESAL [Concomitant]
     Active Substance: BACLOFEN
     Indication: MUSCLE SPASTICITY
     Route: 048
     Dates: start: 20130614
  5. TERAZOSINE [Concomitant]
     Indication: BENIGN PROSTATIC HYPERPLASIA
     Route: 048
     Dates: start: 201112
  6. 4 AMINI PIRIDINE [Concomitant]
     Indication: MUSCLE SPASTICITY
     Route: 048
     Dates: start: 20141210

REACTIONS (1)
  - Multiple sclerosis [Recovered/Resolved]

NARRATIVE: CASE EVENT DATE: 20150917
